FAERS Safety Report 4618372-1 (Version None)
Quarter: 2005Q1

REPORT INFORMATION
  Report Type: 
  Country: None (occurrence: None)
  Receive Date: 20050324
  Receipt Date: 20050309
  Transmission Date: 20050727
  Serious: Yes (Other)
  Sender: FDA-Public Use
  Company Number: FR_050305999

PATIENT
  Age: 78 Year
  Sex: Female

DRUGS (1)
  1. PROZAC [Suspect]
     Indication: DEPRESSION
     Dosage: 20 MG/1 DAY
     Dates: start: 20040101

REACTIONS (4)
  - ARRHYTHMIA [None]
  - BRADYCARDIA [None]
  - PALPITATIONS [None]
  - TACHYCARDIA [None]
